FAERS Safety Report 17505533 (Version 1)
Quarter: 2020Q1

REPORT INFORMATION
  Report Type: Spontaneous
  Country: US (occurrence: US)
  Receive Date: 20200225
  Receipt Date: 20200225
  Transmission Date: 20200409
  Serious: Yes (Hospitalization)
  Sender: FDA-Public Use
  Company Number: None

PATIENT
  Age: 72 Year
  Sex: Male
  Weight: 121 kg

DRUGS (1)
  1. CEFAZOLIN (CEFAZOLIN NA 1GM/BAG INJ) [Suspect]
     Active Substance: CEFAZOLIN SODIUM
     Indication: INFECTION
     Dosage: ?          OTHER STRENGTH:1GM/BAG;?
     Route: 042
     Dates: start: 20190213, end: 20190217

REACTIONS (3)
  - Urticaria [None]
  - Vomiting [None]
  - Nausea [None]

NARRATIVE: CASE EVENT DATE: 20190217
